FAERS Safety Report 26058554 (Version 1)
Quarter: 2025Q4

REPORT INFORMATION
  Report Type: Spontaneous
  Country: US (occurrence: US)
  Receive Date: 20251118
  Receipt Date: 20251118
  Transmission Date: 20260117
  Serious: No
  Sender: ALVOGEN
  Company Number: US-ALVOGEN-2025098644

PATIENT
  Sex: Female

DRUGS (3)
  1. TERIPARATIDE [Suspect]
     Active Substance: TERIPARATIDE
     Indication: Product used for unknown indication
     Dosage: 250 UG/ML
     Route: 058
     Dates: start: 2024
  2. TERIPARATIDE [Suspect]
     Active Substance: TERIPARATIDE
     Indication: Product used for unknown indication
     Dosage: PREVIOUS 2 PENS; 250 UG/ML
     Route: 058
     Dates: start: 2025
  3. TERIPARATIDE [Suspect]
     Active Substance: TERIPARATIDE
     Indication: Product used for unknown indication
     Dosage: EXPIRATION DATE: NOV-2026?SIX DOSES LEFT, 250 UG/ML?560 MCG/2.24 ML(250 MCG/ML)
     Route: 058
     Dates: start: 2025

REACTIONS (5)
  - Device malfunction [Unknown]
  - Device operational issue [Unknown]
  - Device defective [Unknown]
  - Device physical property issue [Unknown]
  - No adverse event [Unknown]

NARRATIVE: CASE EVENT DATE: 20250101
